FAERS Safety Report 8875812 (Version 1)
Quarter: 2012Q4

REPORT INFORMATION
  Report Type: 
  Country: US (occurrence: US)
  Receive Date: 20121030
  Receipt Date: 20121030
  Transmission Date: 20130627
  Serious: Yes (Hospitalization)
  Sender: FDA-Public Use
  Company Number: US-GLAXOSMITHKLINE-A0998625A

PATIENT
  Age: 73 Year
  Sex: Female

DRUGS (15)
  1. ADVAIR [Suspect]
     Indication: ASTHMA
     Dosage: 1PUFF Twice per day
     Route: 055
     Dates: start: 2002
  2. AMOXICILLIN [Suspect]
     Indication: PRODUCT USED FOR UNKNOWN INDICATION
     Route: 048
  3. POTASSIUM CHLORIDE [Concomitant]
  4. METHADONE [Concomitant]
  5. ALVESCO (CICLESONIDE) [Concomitant]
  6. LYRICA [Concomitant]
  7. CYMBALTA [Concomitant]
  8. RAMIPRIL [Concomitant]
  9. BUMETANIDE [Concomitant]
  10. PRAVASTATIN [Concomitant]
  11. SPIRONOLACTONE [Concomitant]
  12. CPAP [Concomitant]
  13. DOXYCYCLINE [Concomitant]
  14. NITROFURANTOIN [Concomitant]
  15. PREDNISONE [Concomitant]

REACTIONS (9)
  - Pneumonia [Not Recovered/Not Resolved]
  - Feeling abnormal [Not Recovered/Not Resolved]
  - Sinus congestion [Not Recovered/Not Resolved]
  - Ear pain [Not Recovered/Not Resolved]
  - Aphonia [Not Recovered/Not Resolved]
  - Dysphonia [Not Recovered/Not Resolved]
  - Pain [Not Recovered/Not Resolved]
  - Dyspnoea [Not Recovered/Not Resolved]
  - Drug ineffective [Not Recovered/Not Resolved]
